FAERS Safety Report 12829140 (Version 1)
Quarter: 2016Q4

REPORT INFORMATION
  Report Type: Spontaneous
  Country: US (occurrence: US)
  Receive Date: 20161007
  Receipt Date: 20161007
  Transmission Date: 20170207
  Serious: No
  Sender: FDA-Public Use
  Company Number: US-SA-2016SA002639

PATIENT
  Age: 66 Year
  Sex: Female

DRUGS (9)
  1. PRAMIPEXOLE DIHYDROCHLORIDE. [Concomitant]
     Active Substance: PRAMIPEXOLE DIHYDROCHLORIDE
  2. MYRBETRIQ [Concomitant]
     Active Substance: MIRABEGRON
  3. DOXYCYCLINE. [Concomitant]
     Active Substance: DOXYCYCLINE
  4. MODAFINIL. [Concomitant]
     Active Substance: MODAFINIL
  5. AUBAGIO [Suspect]
     Active Substance: TERIFLUNOMIDE
     Indication: MULTIPLE SCLEROSIS
     Route: 048
     Dates: start: 20151201
  6. VOLTAREN [Concomitant]
     Active Substance: DICLOFENAC SODIUM
  7. CRESTOR [Concomitant]
     Active Substance: ROSUVASTATIN CALCIUM
  8. CELECOXIB. [Concomitant]
     Active Substance: CELECOXIB
  9. BENICAR [Concomitant]
     Active Substance: OLMESARTAN MEDOXOMIL

REACTIONS (3)
  - Fatigue [Not Recovered/Not Resolved]
  - Feeling abnormal [Recovered/Resolved]
  - Nausea [Recovered/Resolved]

NARRATIVE: CASE EVENT DATE: 20151211
